FAERS Safety Report 25001612 (Version 1)
Quarter: 2025Q1

REPORT INFORMATION
  Report Type: Report from Study
  Country: US (occurrence: US)
  Receive Date: 20250223
  Receipt Date: 20250223
  Transmission Date: 20250409
  Serious: Yes (Other)
  Sender: ABBVIE
  Company Number: US-ABBVIE-6137525

PATIENT
  Age: 64 Year
  Sex: Male

DRUGS (3)
  1. HUMIRA [Suspect]
     Active Substance: ADALIMUMAB
     Indication: Crohn^s disease
     Route: 058
     Dates: start: 2025
  2. HUMIRA [Suspect]
     Active Substance: ADALIMUMAB
     Indication: Rheumatoid arthritis
     Dosage: CITRATE FREE,  FORM STRENGTH: 40MG
     Route: 058
     Dates: start: 20220401, end: 20250119
  3. METHOTREXATE [Concomitant]
     Active Substance: METHOTREXATE
     Indication: Product used for unknown indication

REACTIONS (11)
  - Pyoderma gangrenosum [Recovering/Resolving]
  - Pseudopolyposis [Unknown]
  - Colitis [Unknown]
  - Therapeutic product effect decreased [Not Recovered/Not Resolved]
  - Pain [Unknown]
  - Haematochezia [Recovered/Resolved]
  - C-reactive protein increased [Recovered/Resolved]
  - Limb injury [Recovering/Resolving]
  - Diarrhoea [Recovered/Resolved]
  - Arthralgia [Unknown]
  - Condition aggravated [Not Recovered/Not Resolved]

NARRATIVE: CASE EVENT DATE: 20230101
